FAERS Safety Report 5071765-3 (Version None)
Quarter: 2006Q3

REPORT INFORMATION
  Report Type: 
  Country: None (occurrence: None)
  Receive Date: 20060801
  Receipt Date: 20060718
  Transmission Date: 20061208
  Serious: Yes (Hospitalization, Other)
  Sender: FDA-Public Use
  Company Number: FR200603006208

PATIENT
  Age: 52 Year
  Sex: Male
  Weight: 48 kg

DRUGS (4)
  1. GEMZAR [Suspect]
     Indication: NON-SMALL CELL LUNG CANCER
     Dosage: 1250 MG/M2, OTHER, INTRAVENOUS
     Route: 042
     Dates: start: 20060105, end: 20060201
  2. CISPLATIN (CISPLATIN FORMULATION) [Concomitant]
  3. THERAPEUTIC RADIOPHARMACEUTICALS [Concomitant]
  4. PREVISCAN (FLUINDIONE) [Concomitant]

REACTIONS (4)
  - EPISTAXIS [None]
  - HAEMOLYTIC URAEMIC SYNDROME [None]
  - INTERNATIONAL NORMALISED RATIO INCREASED [None]
  - PERIPHERAL ISCHAEMIA [None]
